FAERS Safety Report 6373786-7 (Version None)
Quarter: 2009Q3

REPORT INFORMATION
  Report Type: 
  Country: None (occurrence: None)
  Receive Date: 20090924
  Receipt Date: 20090527
  Transmission Date: 20100115
  Serious: No
  Sender: FDA-Public Use
  Company Number: US-ASTRAZENECA-2009UW13605

PATIENT
  Age: 35 Year
  Sex: Female
  Weight: 41.4 kg

DRUGS (11)
  1. SEROQUEL [Suspect]
     Route: 048
     Dates: start: 20090101
  2. SEROQUEL [Suspect]
     Route: 048
  3. TEMAZEPAM [Concomitant]
     Indication: SLEEP DISORDER THERAPY
  4. ATIVAN [Concomitant]
  5. LITHIUM [Concomitant]
  6. DEPAKOTE [Concomitant]
  7. METFORMIN HCL [Concomitant]
     Indication: DIABETES MELLITUS
  8. PROPRANOLOL [Concomitant]
     Indication: TREMOR
  9. LEVOTHYROXINE SODIUM [Concomitant]
     Indication: HYPOTHYROIDISM
  10. VITAMINS [Concomitant]
  11. SUPPLEMENTS [Concomitant]

REACTIONS (2)
  - EYE DISORDER [None]
  - VISION BLURRED [None]
